FAERS Safety Report 4506111-4 (Version None)
Quarter: 2004Q4

REPORT INFORMATION
  Report Type: 
  Country: None (occurrence: None)
  Receive Date: 20041025
  Receipt Date: 20040428
  Transmission Date: 20050328
  Serious: Yes (Life-Threatening, Hospitalization)
  Sender: FDA-Public Use
  Company Number: US-JNJFOC-20040406324

PATIENT
  Sex: Male

DRUGS (4)
  1. REMICADE [Suspect]
     Indication: CROHN'S DISEASE
     Dosage: 5 MG/KG, INTRAVENOUS
     Route: 042
  2. PREDNISONE [Concomitant]
  3. ASACOL [Concomitant]
  4. MERCAPTOPURINE [Concomitant]

REACTIONS (1)
  - MENINGITIS TUBERCULOUS [None]
